FAERS Safety Report 8761906 (Version 1)
Quarter: 2012Q4

REPORT INFORMATION
  Report Type: 
  Country: GB (occurrence: GB)
  Receive Date: 20120829
  Receipt Date: 20120829
  Transmission Date: 20130627
  Serious: Yes (Other)
  Sender: FDA-Public Use
  Company Number: GB-PFIZER INC-2012210720

PATIENT
  Age: 25 Year
  Sex: Female

DRUGS (1)
  1. CHAMPIX [Suspect]
     Indication: SMOKING CESSATION THERAPY
     Dosage: 0.5 mg, UNK
     Route: 048
     Dates: start: 20120803, end: 20120810

REACTIONS (5)
  - Anger [Recovered/Resolved]
  - Agitation [Recovered/Resolved]
  - Tearfulness [Recovered/Resolved]
  - Mood swings [Recovered/Resolved]
  - Abnormal behaviour [Recovered/Resolved]
